FAERS Safety Report 16076319 (Version 2)
Quarter: 2020Q1

REPORT INFORMATION
  Report Type: Spontaneous
  Country: US (occurrence: US)
  Receive Date: 20190315
  Receipt Date: 20200220
  Transmission Date: 20200409
  Serious: No
  Sender: FDA-Public Use
  Company Number: US-PFIZER INC-2019105969

PATIENT
  Age: 69 Year

DRUGS (1)
  1. PREMARIN [Suspect]
     Active Substance: ESTROGENS, CONJUGATED
     Indication: VULVOVAGINAL PAIN
     Dosage: UNK UNK, 1X/DAY; ( APPLY A SMALL PEA SIZE AMOUNT EXTERNALLY NIGHTLY)
     Route: 067

REACTIONS (4)
  - Condition aggravated [Unknown]
  - Drug ineffective for unapproved indication [Unknown]
  - Vulvovaginal pain [Unknown]
  - Off label use [Unknown]
